FAERS Safety Report 9698031 (Version 1)
Quarter: 2013Q4

REPORT INFORMATION
  Report Type: Spontaneous
  Country: GB (occurrence: None)
  Receive Date: 20131113
  Receipt Date: 20131113
  Transmission Date: 20140711
  Serious: Yes (Hospitalization, Other)
  Sender: FDA-Public Use
  Company Number: 2013038801

PATIENT
  Age: 79 Year
  Sex: Male

DRUGS (1)
  1. PRIVIGEN (IMMUNE GLOBULIN INTRAVENOUS (HUMAN 10% LIQUID) [Suspect]
     Route: 042
     Dates: start: 20131029, end: 20131029

REACTIONS (5)
  - Oxygen saturation decreased [None]
  - Respiratory rate increased [None]
  - Body temperature increased [None]
  - Malaise [None]
  - Chills [None]
